FAERS Safety Report 24449798 (Version 1)
Quarter: 2024Q4

REPORT INFORMATION
  Report Type: Spontaneous
  Country: ZA (occurrence: ZA)
  Receive Date: 20241017
  Receipt Date: 20241017
  Transmission Date: 20250115
  Serious: Yes (Death, Other)
  Sender: BIOVITRUM
  Company Number: ZA-AstraZeneca-CH-00718829A

PATIENT

DRUGS (1)
  1. SYNAGIS [Suspect]
     Active Substance: PALIVIZUMAB
     Indication: Product used for unknown indication
     Dosage: ALL 5 SYNAGIS INJECTIONS
     Route: 030

REACTIONS (1)
  - Respiratory syncytial virus infection [Fatal]
